FAERS Safety Report 22167691 (Version 1)
Quarter: 2023Q2

REPORT INFORMATION
  Report Type: Spontaneous
  Country: US (occurrence: US)
  Receive Date: 20230403
  Receipt Date: 20230403
  Transmission Date: 20230721
  Serious: Yes (Other)
  Sender: FDA-Public Use
  Company Number: US-TEVA-2023-US-2872509

PATIENT
  Sex: Female

DRUGS (1)
  1. AJOVY [Suspect]
     Active Substance: FREMANEZUMAB-VFRM
     Indication: Product used for unknown indication
     Dosage: 225 MG / 1.5 ML
     Route: 065

REACTIONS (6)
  - Anaphylactic reaction [Unknown]
  - Device delivery system issue [Unknown]
  - Swollen tongue [Unknown]
  - Dysphagia [Unknown]
  - Injection site pain [Unknown]
  - Device malfunction [Unknown]
